APPROVED DRUG PRODUCT: CLISTIN
Active Ingredient: CARBINOXAMINE MALEATE
Strength: 4MG/5ML **Federal Register determination that product was not discontinued or withdrawn for safety or effectiveness reasons**
Dosage Form/Route: ELIXIR;ORAL
Application: N008955 | Product #001
Applicant: MCNEIL PHARMACEUTICAL CO DIV MCNEILAB INC
Approved: Approved Prior to Jan 1, 1982 | RLD: Yes | RS: No | Type: DISCN